FAERS Safety Report 7206539-8 (Version None)
Quarter: 2011Q1

REPORT INFORMATION
  Report Type: 
  Country: None (occurrence: None)
  Receive Date: 20110103
  Receipt Date: 20101221
  Transmission Date: 20110831
  Serious: Yes (Other)
  Sender: FDA-Public Use
  Company Number: PHHY2010US86320

PATIENT
  Sex: Female
  Weight: 74.83 kg

DRUGS (5)
  1. LOVASTATIN [Concomitant]
     Dosage: 40 MG, UNK
  2. LISINOPRIL AND HYDROCHLOROTHIAZIDE [Concomitant]
     Dosage: UNK
  3. RADIATION THERAPY [Concomitant]
  4. FEMARA [Suspect]
     Indication: BREAST CANCER
     Dosage: 2.5 MG, QD
     Dates: start: 20090701
  5. AMLODIPINE [Concomitant]
     Dosage: 2.5 MG, UNK

REACTIONS (1)
  - GALLBLADDER OPERATION [None]
